FAERS Safety Report 20741049 (Version 3)
Quarter: 2023Q1

REPORT INFORMATION
  Report Type: Report from Study
  Country: US (occurrence: US)
  Receive Date: 20220422
  Receipt Date: 20230214
  Transmission Date: 20230418
  Serious: No
  Sender: FDA-Public Use
  Company Number: US-NOVARTISTESTPH-NVSC2022US093567

PATIENT
  Sex: Female

DRUGS (1)
  1. COSENTYX [Suspect]
     Active Substance: SECUKINUMAB
     Indication: Psoriasis
     Dosage: 150 MG, QMO  (A FEW YEARS AGO, AT LEAST 3 YEARS; TOOK 2 PENS MONTHLY)
     Route: 065

REACTIONS (2)
  - Sinusitis [Unknown]
  - Product distribution issue [Unknown]
